FAERS Safety Report 8780507 (Version 1)
Quarter: 2012Q4

REPORT INFORMATION
  Report Type: Spontaneous
  Country: US (occurrence: None)
  Receive Date: 20120829
  Receipt Date: 20120829
  Transmission Date: 20130627
  Serious: Yes (Congenital Anomaly)
  Sender: FDA-Public Use
  Company Number: 1393236

PATIENT

DRUGS (1)
  1. METHOTREXATE [Suspect]
     Route: 064

REACTIONS (2)
  - Maternal drugs affecting foetus [None]
  - Ventricular septal defect [None]
